FAERS Safety Report 18048034 (Version 1)
Quarter: 2020Q3

REPORT INFORMATION
  Report Type: Spontaneous
  Country: US (occurrence: US)
  Receive Date: 20200719
  Receipt Date: 20200719
  Transmission Date: 20201103
  Serious: No
  Sender: FDA-Public Use
  Company Number: None

PATIENT
  Age: 72 Year
  Sex: Female

DRUGS (1)
  1. SUN WAVE CONSUMER ANTISEPTIC HAND SANITIZER [Suspect]
     Active Substance: ISOPROPYL ALCOHOL
     Indication: ANTIBIOTIC PROPHYLAXIS

REACTIONS (2)
  - Unevaluable event [None]
  - Product quality issue [None]

NARRATIVE: CASE EVENT DATE: 20200710
